FAERS Safety Report 4597910-1 (Version None)
Quarter: 2005Q1

REPORT INFORMATION
  Report Type: 
  Country: None (occurrence: None)
  Receive Date: 20050301
  Receipt Date: 20050216
  Transmission Date: 20050727
  Serious: Yes (Hospitalization)
  Sender: FDA-Public Use
  Company Number: S05-USA-00949-01

PATIENT
  Age: 61 Year
  Sex: Female

DRUGS (11)
  1. CELEXA [Suspect]
     Indication: ANXIETY
     Dosage: 20 MG QD PO
     Route: 048
     Dates: start: 20041210, end: 20050201
  2. ZYRTEC [Concomitant]
  3. NEXIUM [Concomitant]
  4. VASOTEC [Concomitant]
  5. FOLTX [Concomitant]
  6. CLONAZEPAM [Concomitant]
  7. MICANTEL [Concomitant]
  8. SERAPHAN [Concomitant]
  9. CODEINE [Concomitant]
  10. LIPITOR [Concomitant]
  11. VALIUM [Concomitant]

REACTIONS (5)
  - CONFUSIONAL STATE [None]
  - DRUG SCREEN POSITIVE [None]
  - PARANOIA [None]
  - PSYCHOTIC DISORDER [None]
  - SLEEP DISORDER [None]
